FAERS Safety Report 6370495-5 (Version None)
Quarter: 2009Q3

REPORT INFORMATION
  Report Type: 
  Country: None (occurrence: None)
  Receive Date: 20090923
  Receipt Date: 20090916
  Transmission Date: 20100115
  Serious: Yes (Hospitalization)
  Sender: FDA-Public Use
  Company Number: US-KINGPHARMUSA00001-K200901140

PATIENT
  Age: 83 Year
  Sex: Female

DRUGS (10)
  1. ALTACE [Suspect]
     Dosage: 2.5 MG, QD
     Route: 048
     Dates: end: 20090427
  2. ALDOMET [Suspect]
     Dosage: 750 MG, QD
     Route: 048
     Dates: end: 20090427
  3. CARDENSIEL [Suspect]
     Dosage: 2.5 MG, QD
     Route: 048
     Dates: end: 20090427
  4. FUROSEMIDE [Suspect]
     Dosage: 40 MG, QD
     Route: 048
     Dates: end: 20090426
  5. DAONIL [Concomitant]
     Indication: DIABETES MELLITUS
     Dosage: 15 MG, UNK
     Route: 048
     Dates: end: 20090401
  6. GLUCOPHAGE [Concomitant]
     Indication: DIABETES MELLITUS
     Dosage: 2000 MG, UNK
     Route: 048
     Dates: end: 20090401
  7. NEURONTIN [Concomitant]
     Dosage: 900 MG, UNK
     Route: 048
  8. LIPANTHYL [Concomitant]
     Dosage: 145 MG, UNK
     Route: 048
  9. OGASTORO [Concomitant]
     Dosage: UNK
     Route: 048
  10. COUMADIN [Concomitant]
     Dosage: UNK
     Route: 048

REACTIONS (9)
  - ARRHYTHMIA [None]
  - ASTHENIA [None]
  - CEREBROVASCULAR ACCIDENT [None]
  - DEHYDRATION [None]
  - ERYSIPELAS [None]
  - GENERAL PHYSICAL HEALTH DETERIORATION [None]
  - HYPOTENSION [None]
  - MUSCULAR WEAKNESS [None]
  - RENAL FAILURE ACUTE [None]
